FAERS Safety Report 21173635 (Version 1)
Quarter: 2022Q3

REPORT INFORMATION
  Report Type: Spontaneous
  Country: US (occurrence: US)
  Receive Date: 20220804
  Receipt Date: 20220804
  Transmission Date: 20221026
  Serious: No
  Sender: FDA-Public Use
  Company Number: US-PERRIGO-21US009687

PATIENT
  Age: 1 Year
  Sex: Male
  Weight: 15.873 kg

DRUGS (1)
  1. LORATADINE [Suspect]
     Active Substance: LORATADINE
     Indication: Accidental exposure to product by child
     Dosage: UNK
     Route: 048
     Dates: start: 20210714, end: 20210714

REACTIONS (1)
  - Accidental exposure to product by child [Recovered/Resolved]

NARRATIVE: CASE EVENT DATE: 20210714
